FAERS Safety Report 21796899 (Version 1)
Quarter: 2022Q4

REPORT INFORMATION
  Report Type: Spontaneous
  Country: US (occurrence: US)
  Receive Date: 20221230
  Receipt Date: 20221230
  Transmission Date: 20230112
  Serious: No
  Sender: FDA-Public Use
  Company Number: US-SA-SAC20221229000140

PATIENT
  Sex: Female

DRUGS (1)
  1. DUPIXENT [Suspect]
     Active Substance: DUPILUMAB
     Dosage: 300 MG; FREQUENCY: OTHER
     Route: 058
     Dates: end: 202210

REACTIONS (5)
  - Injection site rash [Unknown]
  - Pruritus [Unknown]
  - Erythema [Unknown]
  - Exfoliative rash [Unknown]
  - Eczema [Unknown]
